FAERS Safety Report 8157939-3 (Version None)
Quarter: 2012Q1

REPORT INFORMATION
  Report Type: 
  Country: None (occurrence: None)
  Receive Date: 20120222
  Receipt Date: 20120213
  Transmission Date: 20120608
  Serious: Yes (Other)
  Sender: FDA-Public Use
  Company Number: PHFR2012GB001186

PATIENT
  Age: 17 Year
  Sex: Female
  Weight: 59 kg

DRUGS (5)
  1. DIAZEPAM [Concomitant]
     Indication: AGITATION
     Dosage: 4 MG, TID
     Route: 048
     Dates: start: 20100101
  2. HYOSCINE [Concomitant]
     Indication: SALIVARY HYPERSECRETION
     Dosage: 1 DF, TID
     Route: 061
     Dates: start: 20120109
  3. LITHIUM CARBONATE [Concomitant]
     Indication: MOOD SWINGS
     Dosage: 600 MG, QD
     Route: 048
     Dates: start: 20110902
  4. DIAZEPAM [Concomitant]
     Indication: ANXIETY
  5. CLOZARIL [Suspect]
     Indication: PSYCHOTIC DISORDER
     Route: 048
     Dates: start: 20111017

REACTIONS (1)
  - MUSCLE ATROPHY [None]
